FAERS Safety Report 7056826-1 (Version None)
Quarter: 2010Q4

REPORT INFORMATION
  Report Type: 
  Country: None (occurrence: None)
  Receive Date: 20101022
  Receipt Date: 20100423
  Transmission Date: 20110411
  Serious: No
  Sender: FDA-Public Use
  Company Number: A0856502A

PATIENT
  Age: 58 Year
  Sex: Female

DRUGS (4)
  1. DUAC [Suspect]
     Indication: ACNE
     Dosage: 1APP TWICE PER DAY
     Route: 061
     Dates: start: 20100328
  2. DOXYCYCLINE [Concomitant]
  3. ATENOLOL [Concomitant]
  4. HYDROCHLOROTHIAZIDE [Concomitant]

REACTIONS (3)
  - APPLICATION SITE REACTION [None]
  - DRUG INEFFECTIVE [None]
  - PAIN [None]
